FAERS Safety Report 11691727 (Version 1)
Quarter: 2015Q4

REPORT INFORMATION
  Report Type: Spontaneous
  Country: US (occurrence: US)
  Receive Date: 20151103
  Receipt Date: 20151103
  Transmission Date: 20160304
  Serious: No
  Sender: FDA-Public Use
  Company Number: US-009507513-1510USA008162

PATIENT
  Age: 68 Year
  Sex: Female

DRUGS (5)
  1. EMEND [Suspect]
     Active Substance: APREPITANT
     Dosage: 125/80, ONE BOTTLE OF THREE CAPSULES EVERY TWO WEEKS
     Route: 048
     Dates: start: 20150622
  2. NEOMYCIN [Concomitant]
     Active Substance: NEOMYCIN
  3. DOXORUBICIN [Concomitant]
     Active Substance: DOXORUBICIN
  4. DACARBAZINE. [Concomitant]
     Active Substance: DACARBAZINE
  5. VINBLASTINE SULFATE. [Concomitant]
     Active Substance: VINBLASTINE SULFATE

REACTIONS (3)
  - Product quality issue [Unknown]
  - Vomiting [Recovered/Resolved]
  - Nausea [Recovered/Resolved]

NARRATIVE: CASE EVENT DATE: 20150930
